FAERS Safety Report 4905223-0 (Version None)
Quarter: 2006Q1

REPORT INFORMATION
  Report Type: 
  Country: None (occurrence: None)
  Receive Date: 20060208
  Receipt Date: 20051130
  Transmission Date: 20060701
  Serious: No
  Sender: FDA-Public Use
  Company Number: US-GLAXOSMITHKLINE-A0584088A

PATIENT
  Age: 55 Year
  Sex: Female

DRUGS (6)
  1. PAROXETINE HCL [Suspect]
     Indication: DEPRESSION
     Dosage: 50MG PER DAY
     Route: 048
  2. WELLBUTRIN SR [Concomitant]
  3. TRAZODONE [Concomitant]
  4. ACTIVELLA [Concomitant]
  5. NASONEX [Concomitant]
  6. RANITIDINE HCL [Concomitant]

REACTIONS (2)
  - DEPRESSION [None]
  - SOMNOLENCE [None]
